FAERS Safety Report 19094025 (Version 1)
Quarter: 2021Q2

REPORT INFORMATION
  Report Type: Spontaneous
  Country: US (occurrence: US)
  Receive Date: 20210405
  Receipt Date: 20210405
  Transmission Date: 20210717
  Serious: Yes (Other)
  Sender: FDA-Public Use
  Company Number: NVSC2021US075584

PATIENT

DRUGS (1)
  1. KYMRIAH [Suspect]
     Active Substance: TISAGENLECLEUCEL
     Indication: ACUTE LYMPHOCYTIC LEUKAEMIA RECURRENT
     Dosage: UNK, ONCE/SINGLE
     Route: 042
     Dates: start: 20210315, end: 20210315

REACTIONS (3)
  - Malignant neoplasm progression [Not Recovered/Not Resolved]
  - Blast cell count increased [Not Recovered/Not Resolved]
  - Acute lymphocytic leukaemia recurrent [Not Recovered/Not Resolved]
